FAERS Safety Report 9222234 (Version 13)
Quarter: 2013Q4

REPORT INFORMATION
  Report Type: Spontaneous
  Country: GB (occurrence: GB)
  Receive Date: 20130410
  Receipt Date: 20131011
  Transmission Date: 20140711
  Serious: Yes (Hospitalization, Other)
  Sender: FDA-Public Use
  Company Number: PHFR2013GB002045

PATIENT
  Age: 48 Year
  Sex: Male

DRUGS (4)
  1. CLOZARIL [Suspect]
     Indication: SCHIZOPHRENIA
     Dosage: UNK
     Route: 048
     Dates: start: 20111102, end: 20130402
  2. CLOZARIL [Suspect]
     Dosage: UNK
     Route: 048
     Dates: start: 20130916
  3. GRANULOCYTE COLONY-STIMULATING FACTOR NOS [Concomitant]
     Dosage: 300 UG, BIW
  4. FILGRASTIM [Concomitant]
     Dosage: UNK TWICE WEEKLY

REACTIONS (10)
  - Hepatitis C [Unknown]
  - Splenomegaly [Unknown]
  - Loss of consciousness [Unknown]
  - Platelet count decreased [Not Recovered/Not Resolved]
  - Incoherent [Unknown]
  - Confusional state [Unknown]
  - Haemoglobin decreased [Recovered/Resolved]
  - White blood cell count increased [Recovered/Resolved]
  - Neutrophil count increased [Unknown]
  - White blood cell count decreased [Recovered/Resolved]
